FAERS Safety Report 6468026-4 (Version None)
Quarter: 2009Q4

REPORT INFORMATION
  Report Type: 
  Country: None (occurrence: None)
  Receive Date: 20091202
  Receipt Date: 20090403
  Transmission Date: 20100525
  Serious: No
  Sender: FDA-Public Use
  Company Number: US-AMGEN-KDL320291

PATIENT
  Sex: Female
  Weight: 114.4 kg

DRUGS (10)
  1. ENBREL [Suspect]
     Indication: PSORIATIC ARTHROPATHY
     Route: 058
     Dates: start: 20081015
  2. ENBREL [Suspect]
     Indication: PSORIASIS
  3. MEDROL [Concomitant]
  4. HYDROCODONE [Concomitant]
  5. ZANAFLEX [Concomitant]
  6. PROZAC [Concomitant]
  7. DILTIAZEM [Concomitant]
  8. ZOLPIDEM [Concomitant]
  9. LORAZEPAM [Concomitant]
  10. UNSPECIFIED STEROIDS [Concomitant]
     Route: 061

REACTIONS (9)
  - ARTHRALGIA [None]
  - CONTUSION [None]
  - DRUG INEFFECTIVE [None]
  - HEADACHE [None]
  - INJECTION SITE PAIN [None]
  - POST PROCEDURAL HAEMORRHAGE [None]
  - PSORIASIS [None]
  - TOOTH INFECTION [None]
  - VASCULAR RUPTURE [None]
